FAERS Safety Report 7082551-7 (Version None)
Quarter: 2010Q4

REPORT INFORMATION
  Report Type: 
  Country: None (occurrence: None)
  Receive Date: 20101104
  Receipt Date: 20101022
  Transmission Date: 20110411
  Serious: Yes (Life-Threatening)
  Sender: FDA-Public Use
  Company Number: FR-CELGENEUS-056-C5013-10110212

PATIENT
  Sex: Male
  Weight: 52 kg

DRUGS (3)
  1. CC-5013 [Suspect]
     Indication: T-CELL LYMPHOMA
     Route: 048
     Dates: start: 20091117
  2. CC-5013 [Suspect]
     Route: 048
     Dates: start: 20091217, end: 20100104
  3. CC-5013 [Suspect]
     Route: 048
     Dates: start: 20100114

REACTIONS (2)
  - FEBRILE NEUTROPENIA [None]
  - STAPHYLOCOCCAL SEPSIS [None]
